FAERS Safety Report 4696854-4 (Version None)
Quarter: 2005Q2

REPORT INFORMATION
  Report Type: 
  Country: None (occurrence: None)
  Receive Date: 20050622
  Receipt Date: 20041101
  Transmission Date: 20051028
  Serious: Yes (Life-Threatening, Hospitalization)
  Sender: FDA-Public Use
  Company Number: PHBS2004NL14709

PATIENT
  Age: 60 Year
  Sex: Male

DRUGS (3)
  1. OXAZEPAM [Interacting]
     Dosage: 25 MG, BID
     Route: 065
  2. PAROXETINE HCL [Interacting]
     Dosage: 60 MG/D
     Route: 048
  3. LEPONEX [Suspect]
     Indication: SCHIZOPHRENIA
     Dosage: 425 MG/D
     Route: 048
     Dates: end: 20041030

REACTIONS (16)
  - ANGINA PECTORIS [None]
  - ARRHYTHMIA [None]
  - BLOOD CREATINE PHOSPHOKINASE INCREASED [None]
  - BLOOD CREATININE INCREASED [None]
  - CARDIAC FAILURE [None]
  - DISORIENTATION [None]
  - DRUG LEVEL INCREASED [None]
  - ISCHAEMIA [None]
  - MYOCARDIAL INFARCTION [None]
  - NEPHRITIS [None]
  - PERICARDIAL EFFUSION [None]
  - PERICARDITIS [None]
  - RENAL IMPAIRMENT [None]
  - SYNCOPE [None]
  - TACHYCARDIA [None]
  - VENTRICULAR DYSFUNCTION [None]
